FAERS Safety Report 7763647-0 (Version None)
Quarter: 2011Q3

REPORT INFORMATION
  Report Type: 
  Country: None (occurrence: None)
  Receive Date: 20110921
  Receipt Date: 20110913
  Transmission Date: 20111222
  Serious: Yes (Other)
  Sender: FDA-Public Use
  Company Number: US-BIOGENIDEC-2011BI035201

PATIENT
  Age: 38 Year
  Sex: Female

DRUGS (5)
  1. FLUOXETINE [Concomitant]
     Indication: DEPRESSION
  2. GABAPENTIN [Concomitant]
     Indication: NEURALGIA
  3. BACLOFEN [Concomitant]
     Indication: MUSCLE SPASMS
  4. VERAPAMIL [Concomitant]
     Indication: HEADACHE
  5. TYSABRI [Suspect]
     Indication: MULTIPLE SCLEROSIS
     Route: 042
     Dates: start: 20070402

REACTIONS (2)
  - RENAL FAILURE [None]
  - URINARY TRACT INFECTION [None]
